FAERS Safety Report 9385840 (Version 2)
Quarter: 2014Q1

REPORT INFORMATION
  Report Type: Report from Study
  Country: US (occurrence: US)
  Receive Date: 20130705
  Receipt Date: 20140127
  Transmission Date: 20141002
  Serious: Yes (Death, Hospitalization)
  Sender: FDA-Public Use
  Company Number: US-B.I. PHARMACEUTICALS,INC./RIDGEFIELD-2013-BI-19016BI

PATIENT
  Age: 81 Year
  Sex: Male
  Weight: 78.4 kg

DRUGS (27)
  1. PRADAXA [Suspect]
     Indication: ATRIAL FIBRILLATION
     Dosage: 125 MG
     Route: 048
     Dates: start: 20130331, end: 20130418
  2. POTASSIUM CHLORIDE [Concomitant]
     Indication: MINERAL SUPPLEMENTATION
     Dosage: 20 MEQ
     Route: 048
     Dates: start: 20130625
  3. LASIX [Concomitant]
     Indication: DIURETIC THERAPY
     Dosage: 40 MG
     Route: 048
     Dates: start: 20130522
  4. MEMANTINE [Concomitant]
     Indication: DEMENTIA
     Dosage: 20 MG
     Route: 048
  5. PREDNISONE [Concomitant]
     Indication: CHRONIC OBSTRUCTIVE PULMONARY DISEASE
     Dosage: 20 MG
     Route: 048
     Dates: start: 20130326
  6. ASPIRIN [Concomitant]
     Indication: CARDIOVASCULAR EVENT PROPHYLAXIS
     Dosage: 325 MG
     Route: 048
  7. ADVAIR DISKUS [Concomitant]
     Indication: CHRONIC OBSTRUCTIVE PULMONARY DISEASE
     Dosage: FORMULATION: INHALER; DOSE: 500 MCG/50MG
     Route: 048
  8. CITALOPRAM [Concomitant]
     Indication: ANTIDEPRESSANT THERAPY
     Dosage: 20 MG
     Route: 048
     Dates: start: 20130315
  9. TAMSULOSIN [Concomitant]
     Indication: BENIGN PROSTATIC HYPERPLASIA
     Dosage: 0.4 MG
     Route: 048
     Dates: start: 20121226
  10. DUTASTERIDE [Concomitant]
     Indication: BENIGN PROSTATIC HYPERPLASIA
     Dosage: 0.5 MG
     Route: 048
     Dates: start: 20121221
  11. DILTIAZEM [Concomitant]
     Indication: HYPERTENSION
     Dosage: 240 MG
     Route: 048
     Dates: start: 20130623
  12. LIPITOR [Concomitant]
     Indication: HYPERCHOLESTEROLAEMIA
     Dosage: 40 MG
     Route: 048
     Dates: start: 20130404
  13. HALOPERIDOL [Concomitant]
     Indication: AGITATION
     Dosage: 0.4 ML
     Route: 042
     Dates: start: 20130606, end: 20130607
  14. HALOPERIDOL [Concomitant]
     Indication: DEMENTIA
     Dosage: 4.4 ML
     Dates: start: 20130620, end: 20130624
  15. POTASSIUM PHOSPHATE [Concomitant]
     Indication: SUPPLEMENTATION THERAPY
     Dosage: 29 ML
     Dates: start: 20130622, end: 20130623
  16. COMBIVENT [Concomitant]
     Indication: CHRONIC OBSTRUCTIVE PULMONARY DISEASE
     Dosage: FORMULATION: INHALER; Q4 HRS PRN
     Route: 048
     Dates: start: 20121203
  17. SPIRIVA [Concomitant]
     Indication: CHRONIC OBSTRUCTIVE PULMONARY DISEASE
     Dosage: 18 MCG
     Route: 048
     Dates: start: 20121203
  18. IV METOPROLOL [Concomitant]
     Indication: HYPERTENSION
     Dosage: 15 ML
     Dates: start: 20130622, end: 20130626
  19. METHYL PRENISOLONE [Concomitant]
     Indication: CHRONIC OBSTRUCTIVE PULMONARY DISEASE
     Dosage: 1.85 ML
     Dates: start: 20130620, end: 20130626
  20. MAGNESIUM SUFATE + DEXTROSE 5% [Concomitant]
     Indication: CONVULSION
     Dosage: 8 ML
     Dates: start: 20130622, end: 20130622
  21. LOVENOX 40MG=0.4ML [Concomitant]
     Indication: THROMBOSIS PROPHYLAXIS
     Dosage: 0.4 ML
     Route: 058
     Dates: start: 20130626, end: 20130626
  22. LOVENOX 40MG=0.4ML [Concomitant]
     Dosage: 0.4 ML
     Route: 058
     Dates: start: 20130608, end: 20130610
  23. LOVENOX 30MG=0.3ML [Concomitant]
     Indication: THROMBOSIS PROPHYLAXIS
     Dosage: 0.3 ML
     Route: 058
     Dates: start: 20130602, end: 20130607
  24. IV VANCOMYCIN [Concomitant]
     Indication: PNEUMONIA
     Dosage: 1500 MG
     Dates: start: 20130622
  25. IV VANCOMYCIN [Concomitant]
     Dosage: 270.75 ML
     Dates: start: 20130603, end: 20130607
  26. PIPERACILLIN-TAZOBACTAM [Concomitant]
     Indication: PNEUMONIA
     Dosage: 135 ML
     Route: 042
     Dates: start: 20130620, end: 20130626
  27. CIPROFLOXACIN [Concomitant]
     Indication: PNEUMONIA
     Dosage: FORMULATION: OTHER, ROUTE: IV PIGGYBACK
     Dates: start: 20130620, end: 20130620

REACTIONS (7)
  - Necrosis [Fatal]
  - Pneumonia [Fatal]
  - Staphylococcal sepsis [Fatal]
  - Chronic obstructive pulmonary disease [Recovered/Resolved]
  - Pneumonia staphylococcal [Not Recovered/Not Resolved]
  - Fluid overload [Recovered/Resolved]
  - Mental status changes [Unknown]
